FAERS Safety Report 7465473-9 (Version None)
Quarter: 2011Q2

REPORT INFORMATION
  Report Type: 
  Country: None (occurrence: None)
  Receive Date: 20110509
  Receipt Date: 20110427
  Transmission Date: 20111010
  Serious: Yes (Hospitalization, Other)
  Sender: FDA-Public Use
  Company Number: US-ROCHE-749880

PATIENT
  Sex: Male
  Weight: 54.4 kg

DRUGS (2)
  1. ACCUTANE [Suspect]
     Route: 065
     Dates: start: 20010616, end: 20011101
  2. ACCUTANE [Suspect]
     Indication: ACNE
     Route: 065
     Dates: start: 19990101, end: 20000101

REACTIONS (14)
  - DRY SKIN [None]
  - BLOOD TRIGLYCERIDES INCREASED [None]
  - SKIN EXFOLIATION [None]
  - HEPATIC ENZYME INCREASED [None]
  - INFLAMMATORY BOWEL DISEASE [None]
  - CROHN'S DISEASE [None]
  - DEPRESSION [None]
  - IRRITABLE BOWEL SYNDROME [None]
  - THROMBOPHLEBITIS SUPERFICIAL [None]
  - GASTROINTESTINAL INJURY [None]
  - CHAPPED LIPS [None]
  - COLITIS ULCERATIVE [None]
  - SUICIDAL IDEATION [None]
  - LIP DRY [None]
